FAERS Safety Report 9678247 (Version 3)
Quarter: 2015Q4

REPORT INFORMATION
  Report Type: Spontaneous
  Country: GB (occurrence: GB)
  Receive Date: 20131108
  Receipt Date: 20151028
  Transmission Date: 20160305
  Serious: Yes (Other)
  Sender: FDA-Public Use
  Company Number: GB-WATSON-2013-20556

PATIENT
  Age: 27 Year
  Sex: Female
  Weight: 63 kg

DRUGS (4)
  1. FOLIC ACID (UNKNOWN) [Suspect]
     Active Substance: FOLIC ACID
     Indication: PRODUCT USED FOR UNKNOWN INDICATION
     Dosage: UNK, DAILY
     Route: 065
  2. PROGUANIL [Suspect]
     Active Substance: PROGUANIL
     Indication: MALARIA PROPHYLAXIS
     Dosage: 100 MG, UNKNOWN
     Route: 065
  3. ATOVAQUONE. [Suspect]
     Active Substance: ATOVAQUONE
     Indication: PRODUCT USED FOR UNKNOWN INDICATION
     Dosage: 250 MG, UNKNOWN
     Route: 065
  4. YELLOW FEVER VACCINE NOS [Suspect]
     Active Substance: YELLOW FEVER VIRUS STRAIN 17D-204 LIVE ANTIGEN
     Indication: IMMUNISATION
     Dosage: 0.5 ML, SINGLE
     Route: 065
     Dates: start: 20130805, end: 20130805

REACTIONS (4)
  - Maternal exposure during pregnancy [Unknown]
  - Exposure during pregnancy [Unknown]
  - Ventouse extraction [Unknown]
  - Vaginal haemorrhage [Unknown]

NARRATIVE: CASE EVENT DATE: 20140427
